FAERS Safety Report 13292077 (Version 1)
Quarter: 2017Q1

REPORT INFORMATION
  Report Type: Spontaneous
  Country: US (occurrence: US)
  Receive Date: 20170303
  Receipt Date: 20170303
  Transmission Date: 20170428
  Serious: Yes (Hospitalization)
  Sender: FDA-Public Use
  Company Number: None

PATIENT
  Age: 61 Year
  Sex: Male
  Weight: 88.91 kg

DRUGS (21)
  1. HARVONI [Suspect]
     Active Substance: LEDIPASVIR\SOFOSBUVIR
     Indication: HEPATITIS C
     Route: 048
     Dates: start: 20160222, end: 20160809
  2. FERROUS SULFATE. [Concomitant]
     Active Substance: FERROUS SULFATE
  3. MULTIVITAMIN [Concomitant]
     Active Substance: VITAMINS
  4. ZOFRAN [Concomitant]
     Active Substance: ONDANSETRON HYDROCHLORIDE
  5. OMEPRAZOLE. [Concomitant]
     Active Substance: OMEPRAZOLE
  6. ASTELIN [Concomitant]
     Active Substance: AZELASTINE HYDROCHLORIDE
  7. PERZISTA [Concomitant]
  8. IMDUR [Concomitant]
     Active Substance: ISOSORBIDE MONONITRATE
  9. METOPROLOL. [Concomitant]
     Active Substance: METOPROLOL
  10. OXYCODONE [Concomitant]
     Active Substance: OXYCODONE
  11. ALBUTEROL. [Concomitant]
     Active Substance: ALBUTEROL
  12. DOLUTEGRAVIR [Concomitant]
     Active Substance: DOLUTEGRAVIR
  13. LIPITOR [Concomitant]
     Active Substance: ATORVASTATIN CALCIUM
  14. REGLAN [Concomitant]
     Active Substance: METOCLOPRAMIDE HYDROCHLORIDE
  15. ASPIRIN. [Concomitant]
     Active Substance: ASPIRIN
  16. BECLOMETHASONE [Concomitant]
     Active Substance: BECLOMETHASONE
  17. LOSARTAN. [Concomitant]
     Active Substance: LOSARTAN
  18. ZETIA [Concomitant]
     Active Substance: EZETIMIBE
  19. COMBIVENT [Concomitant]
     Active Substance: ALBUTEROL SULFATE\IPRATROPIUM BROMIDE
  20. CLARITIN [Concomitant]
     Active Substance: LORATADINE
  21. CYCLOBENZAPRINE [Concomitant]
     Active Substance: CYCLOBENZAPRINE

REACTIONS (6)
  - Abdominal pain lower [None]
  - Faeces discoloured [None]
  - Angina unstable [None]
  - Nausea [None]
  - Diarrhoea [None]
  - Vomiting [None]

NARRATIVE: CASE EVENT DATE: 20160722
